FAERS Safety Report 5634219-9 (Version None)
Quarter: 2008Q1

REPORT INFORMATION
  Report Type: 
  Country: None (occurrence: None)
  Receive Date: 20080221
  Receipt Date: 20080221
  Transmission Date: 20080703
  Serious: Yes (Hospitalization, Other)
  Sender: FDA-Public Use
  Company Number: None

PATIENT
  Sex: Female
  Weight: 40 kg

DRUGS (1)
  1. DESMOPRESSIN ACETATE [Suspect]
     Indication: HYPERNATRAEMIA
     Dosage: 2.5 MCG Q HS NASAL AT 2200 X 1 DOSE
     Route: 045
     Dates: start: 20080115

REACTIONS (5)
  - BLOOD SODIUM DECREASED [None]
  - CONVULSION [None]
  - DRUG DISPENSING ERROR [None]
  - INCORRECT DOSE ADMINISTERED [None]
  - MEDICATION ERROR [None]
